FAERS Safety Report 12215458 (Version 1)
Quarter: 2016Q1

REPORT INFORMATION
  Report Type: Spontaneous
  Country: US (occurrence: US)
  Receive Date: 20160328
  Receipt Date: 20160328
  Transmission Date: 20160526
  Serious: Yes (Other)
  Sender: FDA-Public Use
  Company Number: US-TEVA-645846USA

PATIENT
  Age: 48 Year
  Sex: Female

DRUGS (1)
  1. ZECUITY [Suspect]
     Active Substance: SUMATRIPTAN SUCCINATE
     Route: 062
     Dates: start: 20160228

REACTIONS (5)
  - Sunburn [Recovering/Resolving]
  - Application site scar [Recovering/Resolving]
  - Application site paraesthesia [Recovered/Resolved]
  - Application site pain [Recovered/Resolved]
  - Application site burn [Recovering/Resolving]

NARRATIVE: CASE EVENT DATE: 20160228
